FAERS Safety Report 5509528-4 (Version None)
Quarter: 2007Q4

REPORT INFORMATION
  Report Type: 
  Country: None (occurrence: None)
  Receive Date: 20071029
  Receipt Date: 20070823
  Transmission Date: 20080405
  Serious: No
  Sender: FDA-Public Use
  Company Number: 013112

PATIENT
  Age: 60 Year
  Sex: Male

DRUGS (2)
  1. PRIALT [Suspect]
     Indication: NEURALGIA
     Dosage: 0.66 UG, ONCE/HOUR, INTRATHECAL; 0.45 UG, ONCE/HOUR, INTRATHECAL
     Route: 037
     Dates: end: 20070820
  2. PRIALT [Suspect]
     Indication: NEURALGIA
     Dosage: 0.66 UG, ONCE/HOUR, INTRATHECAL; 0.45 UG, ONCE/HOUR, INTRATHECAL
     Route: 037
     Dates: start: 20070820

REACTIONS (2)
  - HALLUCINATION, AUDITORY [None]
  - HYPERAESTHESIA [None]
